FAERS Safety Report 4739903-7 (Version None)
Quarter: 2005Q3

REPORT INFORMATION
  Report Type: 
  Country: None (occurrence: None)
  Receive Date: 20050810
  Receipt Date: 20020828
  Transmission Date: 20060218
  Serious: No
  Sender: FDA-Public Use
  Company Number: US-GLAXOSMITHKLINE-A0379712A

PATIENT
  Age: 32 Year
  Sex: Female
  Weight: 77.3 kg

DRUGS (1)
  1. PAXIL [Suspect]
     Indication: BIPOLAR DISORDER
     Dosage: 30MG PER DAY
     Route: 048
     Dates: start: 20010501, end: 20020801

REACTIONS (5)
  - ABNORMAL DREAMS [None]
  - BALANCE DISORDER [None]
  - DRUG WITHDRAWAL SYNDROME [None]
  - INSOMNIA [None]
  - PARAESTHESIA [None]
